FAERS Safety Report 20237263 (Version 1)
Quarter: 2021Q4

REPORT INFORMATION
  Report Type: Spontaneous
  Country: TR (occurrence: TR)
  Receive Date: 20211228
  Receipt Date: 20211228
  Transmission Date: 20220303
  Serious: Yes (Life-Threatening, Hospitalization, Other)
  Sender: FDA-Public Use
  Company Number: TR-MYLANLABS-2021M1080245

PATIENT
  Age: 40 Year
  Sex: Male

DRUGS (4)
  1. CLOZAPINE [Suspect]
     Active Substance: CLOZAPINE
     Indication: Schizophrenia
     Dosage: 25 MILLIGRAM, QD
  2. CLOZAPINE [Suspect]
     Active Substance: CLOZAPINE
     Dosage: TITRATED TO 400 MG/DAY IN 75 DAYS
  3. CLOZAPINE [Suspect]
     Active Substance: CLOZAPINE
     Dosage: INCREASED TO 600 MG/DAY 2 MONTHS AFTER DISCHARGE
  4. CLOZAPINE [Suspect]
     Active Substance: CLOZAPINE
     Dosage: 200 MILLIGRAM, QD

REACTIONS (6)
  - Cardio-respiratory arrest [Recovering/Resolving]
  - Cardiomyopathy [Recovering/Resolving]
  - Pleural effusion [Recovered/Resolved]
  - Syncope [Recovered/Resolved]
  - Cardiac failure [Recovering/Resolving]
  - Pulmonary oedema [Recovering/Resolving]
